FAERS Safety Report 9553461 (Version 4)
Quarter: 2013Q4

REPORT INFORMATION
  Report Type: Spontaneous
  Country: US (occurrence: US)
  Receive Date: 20130925
  Receipt Date: 20131126
  Transmission Date: 20140711
  Serious: No
  Sender: FDA-Public Use
  Company Number: US-009507513-1309USA011552

PATIENT
  Sex: Male

DRUGS (3)
  1. VICTRELIS [Suspect]
     Indication: CHRONIC HEPATITIS C
     Dosage: UNK
     Route: 065
     Dates: start: 20130806, end: 20131031
  2. PEGASYS [Suspect]
     Indication: CHRONIC HEPATITIS C
     Dosage: 180 MICROGRAM, QW, PROCLICK INJECTION
     Route: 065
     Dates: start: 20130408, end: 20131031
  3. COPEGUS [Suspect]
     Indication: CHRONIC HEPATITIS C
     Dosage: 1200 MG, QD
     Route: 065
     Dates: start: 20130408, end: 20131031

REACTIONS (4)
  - Sleep disorder [Not Recovered/Not Resolved]
  - No therapeutic response [Unknown]
  - Fatigue [Not Recovered/Not Resolved]
  - Fatigue [Unknown]
